FAERS Safety Report 8696954 (Version 2)
Quarter: 2013Q4

REPORT INFORMATION
  Report Type: Spontaneous
  Country: US (occurrence: US)
  Receive Date: 20120801
  Receipt Date: 20131031
  Transmission Date: 20140711
  Serious: No
  Sender: FDA-Public Use
  Company Number: US-009507513-2012SP034065

PATIENT
  Age: 34 Year
  Sex: Male

DRUGS (1)
  1. NEXPLANON [Suspect]
     Dosage: 1 DF, UNK

REACTIONS (2)
  - Injury [Recovering/Resolving]
  - Accidental exposure to product [Unknown]
